FAERS Safety Report 12911447 (Version 1)
Quarter: 2016Q4

REPORT INFORMATION
  Report Type: Spontaneous
  Country: US (occurrence: US)
  Receive Date: 20161102
  Receipt Date: 20161102
  Transmission Date: 20170207
  Serious: Yes (Hospitalization, Disabling)
  Sender: FDA-Public Use
  Company Number: None

PATIENT
  Age: 62 Year
  Sex: Male
  Weight: 96.2 kg

DRUGS (7)
  1. OXYCONTIN [Concomitant]
     Active Substance: OXYCODONE HYDROCHLORIDE
  2. NIVOLUMAB [Suspect]
     Active Substance: NIVOLUMAB
     Indication: METASTASES TO BONE
     Dosage: ?          OTHER FREQUENCY:ONCE;?
     Route: 041
     Dates: start: 20160929, end: 20160929
  3. DEXAMETHASONE. [Concomitant]
     Active Substance: DEXAMETHASONE
  4. FOLIC ACID. [Concomitant]
     Active Substance: FOLIC ACID
  5. NIVOLUMAB [Suspect]
     Active Substance: NIVOLUMAB
     Indication: LUNG NEOPLASM MALIGNANT
     Dosage: ?          OTHER FREQUENCY:ONCE;?
     Route: 041
     Dates: start: 20160929, end: 20160929
  6. OXYCODONE [Concomitant]
     Active Substance: OXYCODONE
  7. ATORVASTATIN [Concomitant]
     Active Substance: ATORVASTATIN

REACTIONS (4)
  - Subdural haematoma [None]
  - Disturbance in attention [None]
  - Aphasia [None]
  - Nervous system disorder [None]

NARRATIVE: CASE EVENT DATE: 20161009
